FAERS Safety Report 6619457-0 (Version None)
Quarter: 2010Q1

REPORT INFORMATION
  Report Type: 
  Country: None (occurrence: None)
  Receive Date: 20100302
  Receipt Date: 20100211
  Transmission Date: 20100710
  Serious: Yes (Other)
  Sender: FDA-Public Use
  Company Number: 020670632A

PATIENT
  Age: 26 Year
  Sex: Female

DRUGS (2)
  1. SPARKLING WHITE BAKING SODA AND PEROXIDE TOOTHPASTE [Suspect]
     Indication: DENTAL DISORDER PROPHYLAXIS
     Dosage: 3/4 HEAD OF TB/NI/ORAL, ONE USE
     Route: 048
  2. CLARITIN-D [Concomitant]

REACTIONS (3)
  - DRUG HYPERSENSITIVITY [None]
  - DYSPNOEA [None]
  - PARAESTHESIA [None]
